FAERS Safety Report 5230443-8 (Version None)
Quarter: 2007Q1

REPORT INFORMATION
  Report Type: 
  Country: None (occurrence: None)
  Receive Date: 20070206
  Receipt Date: 20070201
  Transmission Date: 20070707
  Serious: Yes (Death, Other)
  Sender: FDA-Public Use
  Company Number: HQWYE458205FEB07

PATIENT

DRUGS (1)
  1. PREMARIN [Suspect]

REACTIONS (1)
  - OVARIAN CANCER METASTATIC [None]
